FAERS Safety Report 4981479-3 (Version None)
Quarter: 2006Q2

REPORT INFORMATION
  Report Type: 
  Country: None (occurrence: None)
  Receive Date: 20060424
  Receipt Date: 20051114
  Transmission Date: 20061013
  Serious: Yes (Hospitalization)
  Sender: FDA-Public Use
  Company Number: US-MERCK-0511USA02312

PATIENT
  Age: 72 Year
  Sex: Male
  Weight: 64 kg

DRUGS (3)
  1. VIOXX [Suspect]
     Indication: ARTHRITIS
     Route: 048
     Dates: start: 20010327, end: 20010517
  2. VIOXX [Suspect]
     Route: 048
     Dates: start: 20020101, end: 20020101
  3. COUMADIN [Suspect]
     Route: 065

REACTIONS (12)
  - ANAEMIA [None]
  - ANHEDONIA [None]
  - ARTHRALGIA [None]
  - CEREBRAL INFARCTION [None]
  - COAGULOPATHY [None]
  - COLITIS [None]
  - DIVERTICULUM [None]
  - DIVERTICULUM INTESTINAL HAEMORRHAGIC [None]
  - GASTROINTESTINAL HAEMORRHAGE [None]
  - INTESTINAL ISCHAEMIA [None]
  - PAIN [None]
  - TACHYCARDIA [None]
